FAERS Safety Report 8450610-X (Version None)
Quarter: 2012Q2

REPORT INFORMATION
  Report Type: 
  Country: None (occurrence: None)
  Receive Date: 20120620
  Receipt Date: 20120612
  Transmission Date: 20120825
  Serious: Yes (Other)
  Sender: FDA-Public Use
  Company Number: PHEH2012US009062

PATIENT
  Sex: Female
  Weight: 73.923 kg

DRUGS (25)
  1. FUROSEMIDE [Concomitant]
     Dosage: 20 MG, UNK
  2. LEVOTHYROXINE SODIUM [Concomitant]
     Dosage: 137 UG, UNK
  3. DECADRON [Concomitant]
     Dosage: 10MG PO 2X/WEEK
     Route: 048
  4. PLATELETS [Concomitant]
  5. VITAMIN A [Concomitant]
  6. REVLIMID [Concomitant]
     Indication: NEUTROPENIA
     Dosage: 5 MG, 1 DAILY X 21 DAYS OUT OF 28 DAYS
  7. PRILOSEC [Concomitant]
     Dosage: 20 MG, BID
  8. EXJADE [Suspect]
     Indication: IRON OVERLOAD
     Dosage: 250 MG, QID
     Route: 048
     Dates: start: 20100724, end: 20120601
  9. POTASSIUM CHLORIDE [Concomitant]
     Dosage: 20 MEQ, UNK
  10. ASCORBIC ACID [Concomitant]
  11. LUTEIN [Concomitant]
  12. REVLIMID [Concomitant]
     Dosage: 5 MG, UNK
     Dates: start: 20120220
  13. CYANOCOBALAMIN [Concomitant]
     Dosage: 1000 MCG/ML
  14. VITAMIN E [Concomitant]
  15. REVLIMID [Concomitant]
     Indication: THROMBOCYTOPENIA
     Dosage: 5 MG, UNK
     Route: 048
     Dates: start: 20120120, end: 20120313
  16. DEXAMETHASONE [Concomitant]
     Indication: NEUTROPENIA
     Dosage: 10 MG 2 X WEEK
     Route: 048
     Dates: start: 20120120, end: 20120313
  17. DEXAMETHASONE [Concomitant]
     Dates: start: 20120402
  18. CLOBETASOL PROPIONATE [Concomitant]
     Dosage: 0.05 %, UNK
  19. MINERALS NOS [Concomitant]
  20. REVLIMID [Concomitant]
     Dosage: 5 MG, QD
     Dates: start: 20120410
  21. DEXAMETASON [Concomitant]
     Dosage: 4 MG, UNK
  22. DEXAMETHASONE [Concomitant]
     Dosage: 10 MG, 2 DAYS PER WEEK
     Dates: start: 20120402
  23. METOPROLOL TARTRATE [Concomitant]
     Dosage: 50 MG, UNK
  24. FLONASE [Concomitant]
     Dosage: 50 UNK, QD
     Route: 057
  25. VYTORIN [Concomitant]

REACTIONS (10)
  - BLOOD PRESSURE DIASTOLIC DECREASED [None]
  - CARDIAC MURMUR [None]
  - THROMBOCYTOPENIA [None]
  - TREMOR [None]
  - PETECHIAE [None]
  - DYSPNOEA EXERTIONAL [None]
  - HAEMOGLOBIN DECREASED [None]
  - FATIGUE [None]
  - INCREASED TENDENCY TO BRUISE [None]
  - HAEMATOCRIT DECREASED [None]
